FAERS Safety Report 10955657 (Version 2)
Quarter: 2015Q3

REPORT INFORMATION
  Report Type: Report from Study
  Country: GB (occurrence: GB)
  Receive Date: 20150326
  Receipt Date: 20150818
  Transmission Date: 20151125
  Serious: Yes (Hospitalization)
  Sender: FDA-Public Use
  Company Number: GB-ROCHE-1485274

PATIENT
  Age: 68 Year
  Sex: Female
  Weight: 64.6 kg

DRUGS (15)
  1. CYCLOPHOSPHAMIDE. [Suspect]
     Active Substance: CYCLOPHOSPHAMIDE
     Indication: HER-2 POSITIVE BREAST CANCER
     Route: 042
     Dates: start: 20140822
  2. METOCLOPRAMIDE. [Concomitant]
     Active Substance: METOCLOPRAMIDE
     Dosage: 10MG TDS FOR 7 DAYS EACH CYCLE?INDICATION-ANTI-EMETIC
     Route: 065
     Dates: start: 20140822
  3. GELCLAIR (UNITED KINGDOM) [Concomitant]
     Indication: STOMATITIS
     Route: 065
     Dates: start: 201409
  4. LANSOPRAZOLE. [Concomitant]
     Active Substance: LANSOPRAZOLE
     Indication: DYSPEPSIA
     Route: 065
     Dates: start: 20140828, end: 20141031
  5. ONDANSETRON [Concomitant]
     Active Substance: ONDANSETRON
     Dosage: 8MG STAT PRE-CHEMO + ONDANSETRON BD FOR 5 DAYS EACH CYCLE?INDICATION-ANTI-EMETIC
     Route: 065
     Dates: start: 20140822
  6. LANSOPRAZOLE. [Concomitant]
     Active Substance: LANSOPRAZOLE
     Indication: GASTROOESOPHAGEAL REFLUX DISEASE
     Route: 065
     Dates: start: 20141101
  7. DOCETAXEL. [Suspect]
     Active Substance: DOCETAXEL
     Indication: HER-2 POSITIVE BREAST CANCER
     Dosage: DATE OF MOST RECENT DOSE PRIOR TO EVENT:24/OCT/2014
     Route: 042
     Dates: start: 20141024
  8. ADCAL-D3 [Concomitant]
     Active Substance: CALCIUM CARBONATE\CHOLECALCIFEROL
     Indication: PROPHYLAXIS
     Dosage: INDIACTION- TO PREVENT OSTEOPOROSIS
     Route: 065
  9. PERTUZUMAB [Suspect]
     Active Substance: PERTUZUMAB
     Indication: HER-2 POSITIVE BREAST CANCER
     Dosage: DATE OF MOST RECENT DOSE PRIOR TO EVENT: 23/OCT/2014
     Route: 042
     Dates: start: 20141023
  10. TRASTUZUMAB [Suspect]
     Active Substance: TRASTUZUMAB
     Indication: HER-2 POSITIVE BREAST CANCER
     Route: 042
     Dates: start: 20141024, end: 20141024
  11. 5-FLUOROURACIL [Suspect]
     Active Substance: FLUOROURACIL
     Indication: HER-2 POSITIVE BREAST CANCER
     Route: 042
     Dates: start: 20140822
  12. EPIRUBICIN HYDROCHLORIDE. [Suspect]
     Active Substance: EPIRUBICIN HYDROCHLORIDE
     Indication: HER-2 POSITIVE BREAST CANCER
     Route: 042
     Dates: start: 20140822
  13. CETIRIZINE [Concomitant]
     Active Substance: CETIRIZINE HYDROCHLORIDE
     Dosage: INDICATION-ANTI-HISTAMINIC AS REQUIRED
     Route: 065
  14. CORSODYL [Concomitant]
     Active Substance: CHLORHEXIDINE GLUCONATE
     Dosage: INDICATION- POST CHEMOTHERAPY
     Route: 065
     Dates: start: 20140911
  15. DEXAMETHASONE. [Concomitant]
     Active Substance: DEXAMETHASONE
     Dosage: INDICATION- ANTI-EMETIC?8 MG PRE CHEMO STAT; 4 MG THRICE A DAY FOR 2 DAYS AND TWICE A DAY FOR 1 DAY
     Route: 042
     Dates: start: 20140822

REACTIONS (1)
  - Urinary tract infection [Recovered/Resolved]

NARRATIVE: CASE EVENT DATE: 20141031
